FAERS Safety Report 8953810 (Version 1)
Quarter: 2012Q4

REPORT INFORMATION
  Report Type: 
  Country: PE (occurrence: PE)
  Receive Date: 20121206
  Receipt Date: 20121206
  Transmission Date: 20130627
  Serious: Yes (Death, Hospitalization)
  Sender: FDA-Public Use
  Company Number: PE-MYLANLABS-2012S1024417

PATIENT
  Age: 48 Year
  Sex: Female

DRUGS (3)
  1. THIAMAZOLE [Suspect]
     Indication: BASEDOW^S DISEASE
     Dosage: 5mg daily
     Route: 065
  2. FUROSEMIDE [Concomitant]
     Route: 048
  3. PROPRANOLOL [Concomitant]
     Route: 048

REACTIONS (3)
  - Febrile neutropenia [Unknown]
  - Bronchopulmonary aspergillosis [Unknown]
  - Multi-organ failure [Fatal]
